FAERS Safety Report 5752439-X (Version None)
Quarter: 2008Q2

REPORT INFORMATION
  Report Type: 
  Country: None (occurrence: None)
  Receive Date: 20080529
  Receipt Date: 20080522
  Transmission Date: 20081010
  Serious: Yes (Hospitalization)
  Sender: FDA-Public Use
  Company Number: B0522060A

PATIENT
  Age: 76 Year
  Sex: Female
  Weight: 79 kg

DRUGS (7)
  1. AVANDIA [Suspect]
     Dosage: 2UNIT PER DAY
     Route: 048
     Dates: start: 20060101, end: 20061204
  2. IRBESARTAN [Suspect]
     Dosage: 300MG PER DAY
     Route: 048
     Dates: end: 20061022
  3. GINKOR FORT [Concomitant]
     Indication: DRUG USE FOR UNKNOWN INDICATION
     Dosage: 4UNIT PER DAY
     Route: 048
     Dates: end: 20061204
  4. AMAREL [Concomitant]
     Indication: DRUG USE FOR UNKNOWN INDICATION
     Dosage: 1.5UNIT PER DAY
     Route: 048
     Dates: end: 20061204
  5. TAHOR [Concomitant]
     Indication: DRUG USE FOR UNKNOWN INDICATION
     Dosage: 10MG PER DAY
     Route: 048
  6. TANAKAN [Concomitant]
     Indication: DRUG USE FOR UNKNOWN INDICATION
     Dosage: 3UNIT PER DAY
     Route: 048
     Dates: end: 20061204
  7. INSULIN [Concomitant]
     Route: 065
     Dates: start: 20061204

REACTIONS (3)
  - DYSPNOEA [None]
  - OEDEMA PERIPHERAL [None]
  - WEIGHT INCREASED [None]
